FAERS Safety Report 5144756-1 (Version None)
Quarter: 2006Q4

REPORT INFORMATION
  Report Type: 
  Country: None (occurrence: None)
  Receive Date: 20061030
  Receipt Date: 20060829
  Transmission Date: 20070319
  Serious: Yes (Death)
  Sender: FDA-Public Use
  Company Number: 2006RR-02994

PATIENT
  Age: 44 Year
  Sex: Female

DRUGS (3)
  1. CODEINE PHOSPHATE (CODEINE PHOSPHATE) [Suspect]
     Indication: ABDOMINAL PAIN UPPER
     Dosage: ORAL
     Route: 048
  2. IBUPROFEN [Suspect]
     Indication: ABDOMINAL PAIN UPPER
     Dosage: ORAL
     Route: 048
  3. DIAZEPAM TABLETS (DIAZEPAM) [Concomitant]

REACTIONS (1)
  - OVERDOSE [None]
